FAERS Safety Report 4542311-5 (Version None)
Quarter: 2004Q4

REPORT INFORMATION
  Report Type: 
  Country: None (occurrence: None)
  Receive Date: 20041229
  Receipt Date: 20041216
  Transmission Date: 20050328
  Serious: Yes (Other)
  Sender: FDA-Public Use
  Company Number: 003764

PATIENT
  Age: 59 Year
  Sex: Female

DRUGS (4)
  1. MEDROXYPROGESTERONE ACETATE [Suspect]
     Dates: start: 19980101, end: 20011001
  2. PROVERA [Suspect]
     Dates: start: 19980101, end: 20011001
  3. PREMARIN [Suspect]
     Dates: start: 19880101, end: 20011001
  4. PREMPRO [Suspect]
     Dates: start: 20011001, end: 20021201

REACTIONS (1)
  - BREAST CANCER FEMALE [None]
